FAERS Safety Report 7943122-0 (Version None)
Quarter: 2011Q4

REPORT INFORMATION
  Report Type: 
  Country: None (occurrence: None)
  Receive Date: 20111128
  Receipt Date: 20111115
  Transmission Date: 20120403
  Serious: Yes (Hospitalization, Disabling)
  Sender: FDA-Public Use
  Company Number: PHHY2011CO93772

PATIENT
  Sex: Male

DRUGS (8)
  1. FLUOXETINE [Concomitant]
  2. LOVASTATIN [Concomitant]
  3. FUROSEMIDE [Concomitant]
  4. LYRICA [Concomitant]
  5. OMEPRAZOLE [Concomitant]
  6. CERTICAN [Suspect]
     Indication: RENAL TRANSPLANT
     Dosage: 2 TABLETS, DAILY
     Route: 048
     Dates: start: 20110705
  7. CLOZAPINE [Concomitant]
  8. INSULIN [Concomitant]

REACTIONS (4)
  - DISCOMFORT [None]
  - COMPLICATIONS OF TRANSPLANTED KIDNEY [None]
  - BLOOD CREATININE INCREASED [None]
  - DIABETIC NEUROPATHY [None]
